FAERS Safety Report 8111331-6 (Version None)
Quarter: 2012Q1

REPORT INFORMATION
  Report Type: 
  Country: None (occurrence: None)
  Receive Date: 20120203
  Receipt Date: 20110907
  Transmission Date: 20120608
  Serious: No
  Sender: FDA-Public Use
  Company Number: US-GLAXOSMITHKLINE-A0943724A

PATIENT
  Age: 52 Year
  Sex: Female

DRUGS (4)
  1. LISINOPRIL [Concomitant]
  2. NEURONTIN [Concomitant]
  3. BLOOD PRESSURE MEDICATION [Concomitant]
  4. LAMOTRIGINE [Suspect]
     Indication: CONVULSION
     Dosage: 300MG PER DAY
     Route: 048

REACTIONS (2)
  - VOMITING [None]
  - WEIGHT DECREASED [None]
